FAERS Safety Report 8052439-3 (Version None)
Quarter: 2012Q1

REPORT INFORMATION
  Report Type: 
  Country: None (occurrence: None)
  Receive Date: 20120118
  Receipt Date: 20120113
  Transmission Date: 20120608
  Serious: Yes (Hospitalization)
  Sender: FDA-Public Use
  Company Number: TR-PFIZER INC-2012012065

PATIENT
  Sex: Female

DRUGS (3)
  1. SERTRALINE HYDROCHLORIDE [Suspect]
     Dosage: UNK
  2. SERTRALINE HYDROCHLORIDE [Suspect]
     Dosage: 2 TABLETS
     Dates: start: 20120101
  3. SERTRALINE HYDROCHLORIDE [Suspect]
     Dosage: 15-16 TABLETS OF SERTRALINE AT 18:00 PM ON THE DAY

REACTIONS (6)
  - BURNING SENSATION [None]
  - OVERDOSE [None]
  - SUICIDE ATTEMPT [None]
  - VOMITING [None]
  - ARRHYTHMIA [None]
  - LIVER FUNCTION TEST ABNORMAL [None]
